FAERS Safety Report 9704305 (Version 1)
Quarter: 2013Q4

REPORT INFORMATION
  Report Type: Spontaneous
  Country: US (occurrence: None)
  Receive Date: 20131121
  Receipt Date: 20131121
  Transmission Date: 20140711
  Serious: Yes (Hospitalization)
  Sender: FDA-Public Use
  Company Number: None

PATIENT
  Age: 75 Year
  Sex: Male
  Weight: 62 kg

DRUGS (17)
  1. WARFARIN [Suspect]
     Indication: PERIPHERAL VASCULAR DISORDER
     Route: 048
     Dates: start: 20111018
  2. WARFARIN [Suspect]
     Indication: CEREBROVASCULAR ACCIDENT
     Route: 048
     Dates: start: 20111018
  3. WARFARIN [Suspect]
     Route: 048
     Dates: start: 20111018
  4. DIPHENHYDRAMINE [Concomitant]
  5. COLACE [Concomitant]
  6. ISOSORBIDE [Concomitant]
  7. METOPROLOL [Concomitant]
  8. INSULIN DETEMIR [Concomitant]
  9. INSULIN ASPART [Concomitant]
  10. OMEPRAZOLE [Concomitant]
  11. CLOPIDOGREL [Concomitant]
  12. ONDANSETRON [Concomitant]
  13. TANSULOSIN [Concomitant]
  14. SIMVASTIN [Concomitant]
  15. METOCLOPRAMIDE [Concomitant]
  16. GABAPENTIN [Concomitant]
  17. CALCIUM ACETATE [Concomitant]

REACTIONS (5)
  - Urinary tract infection [None]
  - Pyrexia [None]
  - Haematuria [None]
  - Abdominal pain [None]
  - Klebsiella infection [None]
